FAERS Safety Report 11751095 (Version 2)
Quarter: 2015Q4

REPORT INFORMATION
  Report Type: Spontaneous
  Country: JP (occurrence: JP)
  Receive Date: 20151118
  Receipt Date: 20151125
  Transmission Date: 20160304
  Serious: Yes (Other)
  Sender: FDA-Public Use
  Company Number: JP-PFIZER INC-2015394310

PATIENT
  Sex: Male

DRUGS (7)
  1. FINASTERIDE PFIZER [Suspect]
     Active Substance: FINASTERIDE
     Dosage: UNK, 1X/DAY (AFTER BREAKFAST)
     Route: 048
  2. TRANEXAMIC ACID. [Suspect]
     Active Substance: TRANEXAMIC ACID
  3. IBUPROFEN. [Suspect]
     Active Substance: IBUPROFEN
  4. ZITHROMAC [Suspect]
     Active Substance: AZITHROMYCIN DIHYDRATE
     Dosage: 500 MG, DAILY
     Dates: start: 20151110
  5. PLACODE [Suspect]
     Active Substance: CHLORPHENIRAMINE MALEATE\DIHYDROCODEINE\METHYLEPHEDRINE HYDROCHLORIDE, DL-
     Dosage: UNK, 3X/DAY AFTER EVERY MEAL
  6. COREMINAL [Concomitant]
     Active Substance: FLUTAZOLAM
     Indication: IRRITABLE BOWEL SYNDROME
     Dosage: TAKEN AFTER EVERY MEAL
  7. BIOFERMIN [Concomitant]
     Active Substance: BACILLUS SUBTILIS\LACTOBACILLUS ACIDOPHILUS\STREPTOCOCCUS FAECAIS
     Indication: IRRITABLE BOWEL SYNDROME
     Dosage: TAKEN AFTER EVERY MEAL

REACTIONS (5)
  - Dyspnoea [Recovering/Resolving]
  - Nasopharyngitis [Not Recovered/Not Resolved]
  - Seizure [Recovering/Resolving]
  - Wheezing [Recovering/Resolving]
  - Pyrexia [Unknown]

NARRATIVE: CASE EVENT DATE: 20151110
